FAERS Safety Report 17687181 (Version 2)
Quarter: 2022Q4

REPORT INFORMATION
  Report Type: Spontaneous
  Country: JP (occurrence: JP)
  Receive Date: 20200421
  Receipt Date: 20221021
  Transmission Date: 20230112
  Serious: Yes (Death, Other)
  Sender: FDA-Public Use
  Company Number: JP-BIOGEN-2020BI00865654

PATIENT
  Sex: Male
  Weight: 55.5 kg

DRUGS (1)
  1. TYSABRI [Suspect]
     Active Substance: NATALIZUMAB
     Indication: Secondary progressive multiple sclerosis
     Route: 050
     Dates: start: 20140825, end: 20200317

REACTIONS (2)
  - Aspiration [Not Recovered/Not Resolved]
  - Asphyxia [Fatal]

NARRATIVE: CASE EVENT DATE: 20200101
